FAERS Safety Report 9490901 (Version 1)
Quarter: 2013Q3

REPORT INFORMATION
  Report Type: Spontaneous
  Country: US (occurrence: US)
  Receive Date: 20130830
  Receipt Date: 20130830
  Transmission Date: 20140515
  Serious: No
  Sender: FDA-Public Use
  Company Number: US-PFIZER INC-2013246847

PATIENT
  Age: 58 Year
  Sex: Female
  Weight: 48.98 kg

DRUGS (2)
  1. EPIPEN [Suspect]
     Indication: HYPERSENSITIVITY
     Dosage: 0.3 MG, AS NEEDED
     Route: 030
     Dates: start: 20130818, end: 20130818
  2. ZOLPIDEM [Concomitant]
     Indication: INSOMNIA
     Dosage: 10 MG, AS NEEDED
     Route: 048

REACTIONS (1)
  - Drug ineffective [Recovered/Resolved]
